FAERS Safety Report 23100816 (Version 1)
Quarter: 2023Q4

REPORT INFORMATION
  Report Type: Spontaneous
  Country: US (occurrence: None)
  Receive Date: 20231021
  Receipt Date: 20231021
  Transmission Date: 20240109
  Serious: Yes (Hospitalization)
  Sender: FDA-Public Use
  Company Number: None

PATIENT
  Age: 75 Year
  Sex: Male

DRUGS (3)
  1. ALLOPURINOL [Suspect]
     Active Substance: ALLOPURINOL
     Dosage: FREQUENCY : DAILY;?
     Route: 048
     Dates: start: 20200603, end: 20230407
  2. ASPIRIN [Suspect]
     Active Substance: ASPIRIN
  3. OMEPRAZOLE [Suspect]
     Active Substance: OMEPRAZOLE

REACTIONS (2)
  - Tubulointerstitial nephritis [None]
  - Therapy cessation [None]

NARRATIVE: CASE EVENT DATE: 20230313
